FAERS Safety Report 10677870 (Version 2)
Quarter: 2015Q1

REPORT INFORMATION
  Report Type: Report from Study
  Country: US (occurrence: None)
  Receive Date: 20141223
  Receipt Date: 20150102
  Transmission Date: 20150720
  Serious: Yes (Life-Threatening, Other)
  Sender: FDA-Public Use
  Company Number: 201412IM008052

PATIENT
  Age: 72 Year
  Sex: Male

DRUGS (1)
  1. ESBRIET [Suspect]
     Active Substance: PIRFENIDONE
     Indication: IDIOPATHIC PULMONARY FIBROSIS
     Route: 048
     Dates: start: 20141105

REACTIONS (7)
  - Dizziness [None]
  - Feeling abnormal [None]
  - Somnolence [None]
  - Cerebrovascular accident [None]
  - Blood pressure increased [None]
  - Oxygen saturation decreased [None]
  - Dysarthria [None]

NARRATIVE: CASE EVENT DATE: 201412
